FAERS Safety Report 9994650 (Version 1)
Quarter: 2014Q1

REPORT INFORMATION
  Report Type: Spontaneous
  Country: US (occurrence: None)
  Receive Date: 20140307
  Receipt Date: 20140307
  Transmission Date: 20141002
  Serious: Yes (Hospitalization)
  Sender: FDA-Public Use
  Company Number: None

PATIENT
  Age: 78 Year
  Sex: Male
  Weight: 85.7 kg

DRUGS (1)
  1. OXYBUTYNIN [Suspect]
     Indication: URINARY INCONTINENCE
     Route: 048
     Dates: start: 20131114

REACTIONS (5)
  - Urinary retention [None]
  - Urine abnormality [None]
  - Enterococcus test positive [None]
  - Blood creatinine increased [None]
  - Bacterial test positive [None]
